FAERS Safety Report 19424301 (Version 1)
Quarter: 2021Q2

REPORT INFORMATION
  Report Type: Spontaneous
  Country: US (occurrence: US)
  Receive Date: 20210616
  Receipt Date: 20210616
  Transmission Date: 20210717
  Serious: No
  Sender: FDA-Public Use
  Company Number: US-SK LIFE SCIENCE, INC.-SKPVG-2021-000608

PATIENT

DRUGS (1)
  1. XCOPRI [Suspect]
     Active Substance: CENOBAMATE
     Indication: PARTIAL SEIZURES
     Dosage: 100 MILLIGRAM, QD
     Route: 048
     Dates: start: 20210324

REACTIONS (3)
  - Drooling [Not Recovered/Not Resolved]
  - Head discomfort [Not Recovered/Not Resolved]
  - Somnolence [Not Recovered/Not Resolved]
